FAERS Safety Report 5337724-8 (Version None)
Quarter: 2007Q2

REPORT INFORMATION
  Report Type: 
  Country: None (occurrence: None)
  Receive Date: 20070524
  Receipt Date: 20070509
  Transmission Date: 20071010
  Serious: Yes (Hospitalization)
  Sender: FDA-Public Use
  Company Number: 2007000856

PATIENT
  Age: 72 Year
  Sex: Female
  Weight: 121 kg

DRUGS (3)
  1. ERLOTINIB (TABLET) [Suspect]
     Indication: NON-SMALL CELL LUNG CANCER
     Dosage: 100 MG (QD), ORAL
     Route: 048
     Dates: start: 20061128
  2. BEVACIZUMAB OR PLACEBO (INJECTION FOR INFUSION) [Suspect]
     Indication: NON-SMALL CELL LUNG CANCER
     Dosage: 915 MG (Q3W), INTRAVENOUS
     Route: 042
     Dates: start: 20061128
  3. BEVACIZUMAB OR PLACEBO (INJECTION FOR INFUSION) [Suspect]

REACTIONS (2)
  - HYDROPNEUMOTHORAX [None]
  - PLEURAL EFFUSION [None]
